FAERS Safety Report 6651353-5 (Version None)
Quarter: 2010Q1

REPORT INFORMATION
  Report Type: 
  Country: None (occurrence: None)
  Receive Date: 20100325
  Receipt Date: 20100317
  Transmission Date: 20100710
  Serious: Yes (Other)
  Sender: FDA-Public Use
  Company Number: JP-ALLERGAN-1003844US

PATIENT
  Age: 27 Year
  Sex: Male

DRUGS (8)
  1. LUMIGAN [Suspect]
     Indication: GLAUCOMA
     Dosage: 1 GTT, QD
     Route: 047
     Dates: start: 20091211, end: 20100106
  2. PILOCARPINE HCL [Concomitant]
     Dosage: UNK
     Dates: start: 19990928
  3. DORZOLAMIDE HYDROCHLORIDE [Concomitant]
     Dosage: UNK
     Dates: start: 19991018
  4. HYALURONATE SODIUM [Concomitant]
     Dosage: UNK
     Dates: start: 20090324
  5. GLUTATHIONE [Concomitant]
     Dosage: UNK
     Dates: start: 20090324
  6. TIMOLOL MALEATE [Concomitant]
     Dosage: UNK
     Dates: start: 19990928
  7. ACETAZOLAMIDE [Concomitant]
     Dosage: UNK
     Dates: start: 20000325
  8. ASPARTATE POTASSIUM [Concomitant]
     Dosage: UNK
     Dates: start: 20050502

REACTIONS (3)
  - EYE PAIN [None]
  - HEADACHE [None]
  - HYPHAEMA [None]
